FAERS Safety Report 9990929 (Version 1)
Quarter: 2014Q1

REPORT INFORMATION
  Report Type: Report from Study
  Country: US (occurrence: US)
  Receive Date: 20140310
  Receipt Date: 20140310
  Transmission Date: 20141002
  Serious: No
  Sender: FDA-Public Use
  Company Number: US-ABBVIE-13P-163-1129371-00

PATIENT
  Age: 50 Year
  Sex: Female

DRUGS (11)
  1. HUMIRA [Suspect]
     Indication: ANKYLOSING SPONDYLITIS
     Route: 058
     Dates: start: 20130726
  2. SAVELLA [Concomitant]
     Indication: FIBROMYALGIA
  3. OPANA [Concomitant]
     Indication: PAIN
  4. OXYCODONE [Concomitant]
     Dosage: 10/325MG, AS NEEDED
  5. PREMARIN [Concomitant]
     Indication: HORMONE REPLACEMENT THERAPY
  6. DICLOFENAC SODIUM ER [Concomitant]
     Indication: ANTIINFLAMMATORY THERAPY
  7. BACLOFEN [Concomitant]
     Indication: MUSCLE RELAXANT THERAPY
  8. ALPRAZOLAM [Concomitant]
     Indication: ANXIETY
     Dosage: AS NEEDED
  9. METOPROLOL [Concomitant]
     Indication: PALPITATIONS
  10. HYOSCYAMINE [Concomitant]
     Indication: DYSPHAGIA
  11. NEXIUM [Concomitant]
     Indication: HIATUS HERNIA

REACTIONS (2)
  - Wrong technique in drug usage process [Not Recovered/Not Resolved]
  - Injection site haemorrhage [Not Recovered/Not Resolved]
